FAERS Safety Report 11087043 (Version 2)
Quarter: 2015Q3

REPORT INFORMATION
  Report Type: Report from Study
  Country: AU (occurrence: AU)
  Receive Date: 20150504
  Receipt Date: 20150810
  Transmission Date: 20151125
  Serious: Yes (Other)
  Sender: FDA-Public Use
  Company Number: AU-SA-2015SA054553

PATIENT
  Sex: Female

DRUGS (11)
  1. ARAVA [Suspect]
     Active Substance: LEFLUNOMIDE
     Route: 048
     Dates: start: 20150301
  2. PREDNISONE. [Concomitant]
     Active Substance: PREDNISONE
  3. ACTONEL [Concomitant]
     Active Substance: RISEDRONATE SODIUM
     Dates: start: 201303
  4. MELOXICAM. [Concomitant]
     Active Substance: MELOXICAM
  5. SALAZOPYRINE [Concomitant]
     Active Substance: SULFASALAZINE
  6. ARAVA [Suspect]
     Active Substance: LEFLUNOMIDE
     Route: 048
     Dates: start: 20130201, end: 201303
  7. FOLIC ACID. [Concomitant]
     Active Substance: FOLIC ACID
     Dates: start: 201303
  8. METHOTREXATE [Concomitant]
     Active Substance: METHOTREXATE
     Dates: start: 201303
  9. PREDNISONE. [Concomitant]
     Active Substance: PREDNISONE
     Dates: start: 201303
  10. PLAQUENIL [Concomitant]
     Active Substance: HYDROXYCHLOROQUINE SULFATE
  11. TAMOXIFEN [Concomitant]
     Active Substance: TAMOXIFEN

REACTIONS (11)
  - Joint swelling [Not Recovered/Not Resolved]
  - Depressed mood [Not Recovered/Not Resolved]
  - Liver function test abnormal [Not Recovered/Not Resolved]
  - Transaminases increased [Recovered/Resolved]
  - Blood lactate dehydrogenase increased [Not Recovered/Not Resolved]
  - Joint stiffness [Not Recovered/Not Resolved]
  - Musculoskeletal stiffness [Not Recovered/Not Resolved]
  - Unevaluable event [Not Recovered/Not Resolved]
  - Eye swelling [Not Recovered/Not Resolved]
  - Breast cancer [Unknown]
  - Limb discomfort [Unknown]

NARRATIVE: CASE EVENT DATE: 2013
